FAERS Safety Report 4463475-8 (Version None)
Quarter: 2004Q3

REPORT INFORMATION
  Report Type: 
  Country: None (occurrence: None)
  Receive Date: 20040928
  Receipt Date: 20040914
  Transmission Date: 20050211
  Serious: Yes (Hospitalization)
  Sender: FDA-Public Use
  Company Number: 04P-056-0273257-00

PATIENT
  Age: 59 Year
  Sex: Female

DRUGS (5)
  1. BIAXIN [Suspect]
     Indication: GASTRITIS
     Dosage: PER ORAL
     Route: 048
     Dates: start: 20040617
  2. LANSOPRAZOLE [Suspect]
     Indication: GASTRITIS
     Dosage: PER ORAL
     Route: 048
     Dates: start: 20040617, end: 20040629
  3. AMOXICILLIN TRIHYDRATE [Suspect]
     Indication: GASTRITIS
     Dosage: PER ORAL
     Route: 048
     Dates: start: 20040617
  4. CARBAMAZEPINE [Concomitant]
  5. KARVEA HCT [Concomitant]

REACTIONS (10)
  - ABDOMINAL PAIN UPPER [None]
  - ANOREXIA [None]
  - BOWEL SOUNDS ABNORMAL [None]
  - EPIGASTRIC DISCOMFORT [None]
  - FALL [None]
  - FLATULENCE [None]
  - HYPOKALAEMIA [None]
  - HYPONATRAEMIA [None]
  - NAUSEA [None]
  - VOMITING [None]
